FAERS Safety Report 9047428 (Version 1)
Quarter: 2013Q1

REPORT INFORMATION
  Report Type: Spontaneous
  Country: PR (occurrence: PR)
  Receive Date: 20130201
  Receipt Date: 20130201
  Transmission Date: 20140127
  Serious: No
  Sender: FDA-Public Use
  Company Number: PR-ABBOTT-12P-131-0953015-00

PATIENT
  Age: 41 None
  Sex: Female

DRUGS (1)
  1. HUMIRA [Suspect]
     Indication: PRODUCT USED FOR UNKNOWN INDICATION
     Route: 058
     Dates: end: 20121220

REACTIONS (12)
  - Dizziness [Unknown]
  - Fatigue [Unknown]
  - Pruritus [Unknown]
  - Dysphonia [Unknown]
  - Vision blurred [Unknown]
  - Headache [Unknown]
  - Dyspnoea [Unknown]
  - Injection site erythema [Unknown]
  - Ear pain [Unknown]
  - Toothache [Unknown]
  - Ear infection [Unknown]
  - Nasopharyngitis [Unknown]
